FAERS Safety Report 24305663 (Version 1)
Quarter: 2024Q3

REPORT INFORMATION
  Report Type: Spontaneous
  Country: DE (occurrence: DE)
  Receive Date: 20240911
  Receipt Date: 20240911
  Transmission Date: 20241016
  Serious: Yes (Life-Threatening, Hospitalization, Other)
  Sender: LEADING PHARMA
  Company Number: DE-LEADINGPHARMA-DE-2024LEALIT00379

PATIENT
  Age: 12 Week
  Sex: Male

DRUGS (4)
  1. LIDOCAINE [Suspect]
     Active Substance: LIDOCAINE
     Indication: Nerve block
     Route: 042
  2. ESKETAMINE [Concomitant]
     Active Substance: ESKETAMINE
     Indication: Anaesthesia
     Route: 065
  3. REMIFENTANIL [Concomitant]
     Active Substance: REMIFENTANIL
     Indication: Anaesthesia
     Route: 065
  4. VECURONIUM BROMIDE [Concomitant]
     Active Substance: VECURONIUM BROMIDE
     Indication: Anaesthesia
     Route: 065

REACTIONS (6)
  - Seizure [Recovered/Resolved]
  - Tachycardia [Recovered/Resolved]
  - Toxicity to various agents [Recovered/Resolved]
  - Accidental overdose [Unknown]
  - Incorrect route of product administration [Unknown]
  - Product use in unapproved indication [Unknown]
